FAERS Safety Report 5017884-9 (Version None)
Quarter: 2006Q2

REPORT INFORMATION
  Report Type: 
  Country: None (occurrence: None)
  Receive Date: 20060602
  Receipt Date: 20060602
  Transmission Date: 20061013
  Serious: Yes (Other)
  Sender: FDA-Public Use
  Company Number: None

PATIENT
  Age: 80 Year
  Sex: Female
  Weight: 80.7403 kg

DRUGS (1)
  1. CUBICIN [Suspect]
     Indication: CELLULITIS
     Dosage: 500MG  EVERY 24 HOURS IV
     Route: 042
     Dates: start: 20060525, end: 20060531

REACTIONS (3)
  - PRURITUS [None]
  - RASH [None]
  - URTICARIA [None]
